FAERS Safety Report 5391024-9 (Version None)
Quarter: 2007Q3

REPORT INFORMATION
  Report Type: 
  Country: None (occurrence: None)
  Receive Date: 20070719
  Receipt Date: 20070711
  Transmission Date: 20080115
  Serious: Yes (Hospitalization, Disabling)
  Sender: FDA-Public Use
  Company Number: JP-AVENTIS-200614000JP

PATIENT
  Age: 57 Year
  Sex: Female
  Weight: 58 kg

DRUGS (8)
  1. TAXOTERE [Suspect]
     Indication: BREAST CANCER RECURRENT
     Dosage: DOSE: 100 MG/BODY
     Route: 041
     Dates: start: 20061129, end: 20061220
  2. ARIMIDEX [Concomitant]
     Indication: BREAST CANCER RECURRENT
     Route: 048
     Dates: start: 20050225, end: 20061221
  3. LOXONIN                            /00890701/ [Concomitant]
     Indication: BONE PAIN
     Route: 048
     Dates: start: 20061129, end: 20061221
  4. GASTER [Concomitant]
     Route: 048
     Dates: start: 20061129, end: 20061221
  5. ZOMETA [Concomitant]
     Route: 041
     Dates: start: 20061108, end: 20061220
  6. SEROTONE [Concomitant]
     Indication: PREMEDICATION
  7. DECADRON [Concomitant]
     Indication: PREMEDICATION
  8. ZANTAC [Concomitant]
     Indication: PREMEDICATION

REACTIONS (2)
  - DIPLEGIA [None]
  - SPINAL CORD INFARCTION [None]
